FAERS Safety Report 5404786-9 (Version None)
Quarter: 2007Q3

REPORT INFORMATION
  Report Type: 
  Country: None (occurrence: None)
  Receive Date: 20070713
  Receipt Date: 20070419
  Transmission Date: 20080115
  Serious: Yes (Hospitalization)
  Sender: FDA-Public Use
  Company Number: REM_00329_2007

PATIENT
  Age: 50 Year
  Sex: Male
  Weight: 128 kg

DRUGS (7)
  1. REMODULIN [Suspect]
     Indication: PULMONARY HYPERTENSION
     Dosage: 2.4 NG/KG/MIN (0.0024 UG/KG,1 IN  1 MIN),INTRAVENOUS
     Route: 042
     Dates: start: 20060919
  2. LANSOPRAZOLE [Concomitant]
  3. POTASSIUM SR (POTASSIUM) (TABLETS) [Concomitant]
  4. ACETAMINOPHEN [Concomitant]
  5. MILK OF MAGNESIA TAB [Concomitant]
  6. ZOLPIDEM TARTRATE [Concomitant]
  7. ONDANSETRON HCL [Concomitant]

REACTIONS (1)
  - BACTERAEMIA [None]
